FAERS Safety Report 16132006 (Version 6)
Quarter: 2019Q2

REPORT INFORMATION
  Report Type: Spontaneous
  Country: JP (occurrence: JP)
  Receive Date: 20190329
  Receipt Date: 20190516
  Transmission Date: 20190711
  Serious: Yes (Death, Life-Threatening, Other)
  Sender: FDA-Public Use
  Company Number: JP-BEH-2019100877

PATIENT
  Age: 72 Year
  Sex: Male
  Weight: 55 kg

DRUGS (18)
  1. ALBUMINAR-25 [Suspect]
     Active Substance: ALBUMIN HUMAN
     Indication: ASCITES
     Dosage: 2 VIALS PER DAY OVER 3 DAYS
     Route: 041
     Dates: start: 20181214, end: 20181216
  2. ALBUMINAR-25 [Suspect]
     Active Substance: ALBUMIN HUMAN
     Dosage: 2 VIALS PER DAY OVER 3 DAYS
     Route: 041
     Dates: start: 20190115, end: 20190117
  3. ALBUMINAR-25 [Suspect]
     Active Substance: ALBUMIN HUMAN
     Dosage: 2 VIALS PER DAY
     Route: 042
     Dates: start: 20190310, end: 20190312
  4. LANSOPRAZOLE. [Concomitant]
     Active Substance: LANSOPRAZOLE
     Dosage: 15 MG, 2 TABLETS DAILY
     Route: 048
     Dates: start: 20190310
  5. FUROSEMIDE. [Concomitant]
     Active Substance: FUROSEMIDE
     Indication: ASCITES
     Dosage: 20 MG, 1 TABLET DAILY
     Route: 048
     Dates: start: 20190309
  6. OLOPATADINE. [Concomitant]
     Active Substance: OLOPATADINE
     Dosage: 2 TABLETS DAILY
     Route: 048
  7. HUMAN SERUM ALBUMIN [Concomitant]
     Active Substance: ALBUMIN HUMAN
     Indication: ACUTE HEPATITIS C
     Dosage: UNK
     Route: 065
     Dates: start: 20190309
  8. SPIRONOLACTONE. [Concomitant]
     Active Substance: SPIRONOLACTONE
     Indication: ASCITES
     Dosage: 25 MG, 2 TABLETS DAILY
     Route: 048
     Dates: start: 20190309
  9. LYRICA [Concomitant]
     Active Substance: PREGABALIN
     Dosage: 25 MG, 1 CAPSULE DAILY
     Route: 048
  10. HUMAN SERUM ALBUMIN [Concomitant]
     Active Substance: ALBUMIN HUMAN
     Indication: HEPATIC FAILURE
  11. HAPTOGLOBIN [Concomitant]
     Dosage: 2 VIALS
     Route: 042
     Dates: start: 20181213, end: 20181213
  12. LACTULOSE. [Concomitant]
     Active Substance: LACTULOSE
     Indication: HAEMORRHAGE PROPHYLAXIS
     Dosage: 30 ML, DAILY
     Route: 048
     Dates: start: 20190310
  13. AMINOVACT [Concomitant]
     Dosage: 3 PACKS DAILY
     Route: 048
  14. NALFURAFINE [Concomitant]
     Dosage: 2.5 ?G, 1 CAPSULE DAILY
     Route: 048
  15. GLIMEPIRIDE. [Concomitant]
     Active Substance: GLIMEPIRIDE
     Dosage: 1 MG, 1 TABLET DAILY
     Route: 048
  16. HAPTOGLOBIN [Concomitant]
     Dosage: 2 VIALS
     Route: 042
     Dates: start: 20181219, end: 20181219
  17. TRAZENTA [Concomitant]
     Active Substance: LINAGLIPTIN
     Dosage: 5 MG, QD
     Route: 048
  18. SAMSCA [Concomitant]
     Active Substance: TOLVAPTAN
     Dosage: 3.75 MG, UNK
     Route: 048
     Dates: start: 20190316

REACTIONS (10)
  - Blood glucose increased [Unknown]
  - Acute hepatitis C [Fatal]
  - Hepatic failure [Fatal]
  - Jaundice [Fatal]
  - Hepatitis C virus test positive [Fatal]
  - Abdominal distension [Fatal]
  - Hepatitis C antibody positive [Fatal]
  - Suspected transmission of an infectious agent via product [Fatal]
  - Hepatic encephalopathy [Unknown]
  - Dyspnoea [Fatal]

NARRATIVE: CASE EVENT DATE: 20190309
